FAERS Safety Report 10618660 (Version 1)
Quarter: 2014Q4

REPORT INFORMATION
  Report Type: Spontaneous
  Country: DE (occurrence: None)
  Receive Date: 20141124
  Receipt Date: 20141124
  Transmission Date: 20150529
  Serious: No
  Sender: FDA-Public Use
  Company Number: DE-ZYDUS-005512

PATIENT
  Age: 56 Year
  Sex: Female

DRUGS (2)
  1. RISPERIDONE. [Suspect]
     Active Substance: RISPERIDONE
  2. BENZODIAZEPINE [Concomitant]
     Active Substance: BENZODIAZEPINE

REACTIONS (9)
  - Dysstasia [None]
  - Thyroid cancer metastatic [None]
  - Osteoarthritis [None]
  - Follicular thyroid cancer [None]
  - Tumour pain [None]
  - Local reaction [None]
  - Metastases to muscle [None]
  - Pain [None]
  - Arthralgia [None]
